FAERS Safety Report 19633767 (Version 3)
Quarter: 2022Q3

REPORT INFORMATION
  Report Type: Report from Study
  Country: MX (occurrence: MX)
  Receive Date: 20210729
  Receipt Date: 20220825
  Transmission Date: 20221027
  Serious: Yes (Hospitalization, Disabling)
  Sender: FDA-Public Use
  Company Number: MX-NOVARTISPH-NVSC2021MX168318

PATIENT
  Age: 35 Year
  Sex: Male
  Weight: 82 kg

DRUGS (4)
  1. GILENYA [Suspect]
     Active Substance: FINGOLIMOD HYDROCHLORIDE
     Indication: Multiple sclerosis
     Dosage: 0.5 MG, QD  (2 YEARS AGO DOES NOT KNOW EXACT DATE)
     Route: 048
  2. GILENYA [Suspect]
     Active Substance: FINGOLIMOD HYDROCHLORIDE
     Dosage: 0.5 MG, QD
     Route: 048
     Dates: start: 20220211
  3. METHYLPHENIDATE [Concomitant]
     Active Substance: METHYLPHENIDATE
     Indication: Asthenia
     Dosage: 1 DOSAGE FORM, QD 1 DOSAGE FORM, QD (3 YEARS AGO, DOSE NOT KNOWN EXACT DATE)
     Route: 048
  4. SERTRALINE [Concomitant]
     Active Substance: SERTRALINE HYDROCHLORIDE
     Indication: Antidepressant therapy
     Dosage: 1 DOSAGE FORM, QD 1 DOSAGE FORM, QD (3 YEARS AGO, DOSE NOT KNOWN EXACT DATE)
     Route: 048

REACTIONS (10)
  - Multiple sclerosis relapse [Recovered/Resolved with Sequelae]
  - Mobility decreased [Recovering/Resolving]
  - Gait disturbance [Not Recovered/Not Resolved]
  - Clumsiness [Not Recovered/Not Resolved]
  - Limb discomfort [Not Recovered/Not Resolved]
  - Motor dysfunction [Not Recovered/Not Resolved]
  - Movement disorder [Recovered/Resolved with Sequelae]
  - Asthenia [Recovered/Resolved with Sequelae]
  - Malaise [Unknown]
  - Fatigue [Not Recovered/Not Resolved]

NARRATIVE: CASE EVENT DATE: 20210712
